FAERS Safety Report 4641446-6 (Version None)
Quarter: 2005Q2

REPORT INFORMATION
  Report Type: 
  Country: None (occurrence: None)
  Receive Date: 20050421
  Receipt Date: 20050331
  Transmission Date: 20051028
  Serious: Yes (Other)
  Sender: FDA-Public Use
  Company Number: PHBS2005CA04559

PATIENT
  Age: 23 Year
  Sex: Male

DRUGS (5)
  1. CLOZARIL [Suspect]
     Dosage: 600 MG/D
     Route: 048
     Dates: start: 20030101
  2. CLOZARIL [Suspect]
     Dosage: 550 MG/D
     Route: 048
  3. BUSPIRONE HCL [Concomitant]
  4. RIVOTRIL [Concomitant]
  5. ATIVAN [Concomitant]

REACTIONS (3)
  - ELECTROCARDIOGRAM T WAVE ABNORMAL [None]
  - TACHYCARDIA [None]
  - VENTRICULAR HYPOKINESIA [None]
